FAERS Safety Report 9926612 (Version 2)
Quarter: 2014Q1

REPORT INFORMATION
  Report Type: Spontaneous
  Country: US (occurrence: US)
  Receive Date: 20140226
  Receipt Date: 20140226
  Transmission Date: 20141002
  Serious: No
  Sender: FDA-Public Use
  Company Number: US-AMGEN-USASP2013030789

PATIENT
  Age: 68 Year
  Sex: Male
  Weight: 80.73 kg

DRUGS (6)
  1. ENBREL [Suspect]
     Indication: RHEUMATOID ARTHRITIS
     Dosage: 50 MG, QWK
     Route: 058
  2. MULTIVITAMINS, PLAIN [Concomitant]
     Dosage: UNK
     Route: 065
  3. ASPIRIN [Concomitant]
     Dosage: 325 MG, UNK
     Route: 065
  4. VITAMIN C                          /00008001/ [Concomitant]
     Dosage: 500MG/5/ML LIQUID AS DIRECTED DAILY
     Route: 065
  5. CENTRUM SILVER                     /02363801/ [Concomitant]
     Route: 065
  6. CALCIUM +D                         /00944201/ [Concomitant]
     Dosage: 1200-250 MG, QD

REACTIONS (15)
  - Asthenia [Unknown]
  - Pain [Unknown]
  - Swelling [Unknown]
  - Insomnia [Unknown]
  - Sleep disorder [Unknown]
  - Contusion [Unknown]
  - Osteoarthritis [Unknown]
  - Joint stiffness [Unknown]
  - Joint swelling [Unknown]
  - Myalgia [Unknown]
  - Arthralgia [Unknown]
  - Musculoskeletal stiffness [Unknown]
  - Musculoskeletal pain [Unknown]
  - Oedema peripheral [Recovered/Resolved]
  - Drug ineffective [Unknown]
